FAERS Safety Report 10584602 (Version 1)
Quarter: 2014Q4

REPORT INFORMATION
  Report Type: Spontaneous
  Country: US (occurrence: US)
  Receive Date: 20141114
  Receipt Date: 20141114
  Transmission Date: 20150529
  Serious: No
  Sender: FDA-Public Use
  Company Number: US-US-EMD SERONO, INC.-7333531

PATIENT
  Sex: Female

DRUGS (1)
  1. REBIF [Suspect]
     Active Substance: INTERFERON BETA-1A
     Indication: PRODUCT USED FOR UNKNOWN INDICATION
     Route: 058
     Dates: start: 200912

REACTIONS (4)
  - Contusion [Not Recovered/Not Resolved]
  - Weight increased [Unknown]
  - Speech disorder [Not Recovered/Not Resolved]
  - Feeling hot [Not Recovered/Not Resolved]
